FAERS Safety Report 6951852-2 (Version None)
Quarter: 2010Q3

REPORT INFORMATION
  Report Type: 
  Country: None (occurrence: None)
  Receive Date: 20100829
  Receipt Date: 20100409
  Transmission Date: 20110219
  Serious: No
  Sender: FDA-Public Use
  Company Number: US-ABBOTT-10P-163-0638925-00

PATIENT
  Sex: Female
  Weight: 101.7 kg

DRUGS (14)
  1. NIASPAN [Suspect]
     Indication: HIGH DENSITY LIPOPROTEIN DECREASED
     Dosage: SAMPLES FROM MD OFFICE; HAD 1 DOSE ONLY AT BEDTIME
     Route: 048
     Dates: start: 20100408
  2. NIASPAN [Suspect]
     Indication: BLOOD CHOLESTEROL INCREASED
  3. NIASPAN [Suspect]
     Indication: BLOOD TRIGLYCERIDES INCREASED
  4. TRILIPIX [Suspect]
     Indication: BLOOD TRIGLYCERIDES INCREASED
     Dosage: SAMPLES FROM MD OFFICE; HAD 1 DOSE ONLY AT BEDTIME
     Route: 048
     Dates: start: 20100408
  5. TRILIPIX [Suspect]
     Indication: BLOOD CHOLESTEROL INCREASED
  6. TRILIPIX [Suspect]
     Indication: HIGH DENSITY LIPOPROTEIN DECREASED
  7. DEPAKOTE [Concomitant]
     Indication: MUSCLE SPASMS
  8. DEPAKOTE [Concomitant]
     Indication: PARALYSIS
  9. DEPAKOTE [Concomitant]
     Indication: MIGRAINE
  10. PRILOSEC [Concomitant]
     Indication: GASTRIC DISORDER
  11. OSTEOBIFLEX [Concomitant]
     Indication: ARTHRALGIA
  12. LOVAZA [Concomitant]
     Indication: PRODUCT USED FOR UNKNOWN INDICATION
  13. ASPIRIN [Concomitant]
     Indication: PRODUCT USED FOR UNKNOWN INDICATION
     Dosage: AT BEDTIME, HALF HOUR BEFORE NIASPAN
     Route: 048
     Dates: start: 20100408
  14. TREXAMET [Concomitant]
     Indication: MIGRAINE

REACTIONS (16)
  - ABNORMAL SLEEP-RELATED EVENT [None]
  - CHEST DISCOMFORT [None]
  - CHILLS [None]
  - CHOKING [None]
  - DYSPEPSIA [None]
  - DYSPNOEA [None]
  - FALL [None]
  - FLUSHING [None]
  - LOSS OF CONSCIOUSNESS [None]
  - MALAISE [None]
  - MUSCULOSKELETAL STIFFNESS [None]
  - MYALGIA [None]
  - PARAESTHESIA [None]
  - POOR QUALITY SLEEP [None]
  - SKIN DISCOLOURATION [None]
  - SLEEP TALKING [None]
